FAERS Safety Report 4417690-X (Version None)
Quarter: 2004Q2

REPORT INFORMATION
  Report Type: 
  Country: None (occurrence: None)
  Receive Date: 20040629
  Receipt Date: 20031202
  Transmission Date: 20050107
  Serious: Yes (Hospitalization)
  Sender: FDA-Public Use
  Company Number: USA031253795

PATIENT
  Age: 71 Year
  Sex: Female
  Weight: 66 kg

DRUGS (2)
  1. HUMULIN-HUMAN INSULIN (RDNA) UNKNOWN FORMULATION(HU [Suspect]
     Indication: DIABETES MELLITUS
     Dates: start: 19980101
  2. HUMALOG [Suspect]
     Indication: DIABETES MELLITUS
     Dates: start: 20031203

REACTIONS (3)
  - BACK PAIN [None]
  - HEADACHE [None]
  - MENTAL IMPAIRMENT [None]
